FAERS Safety Report 5684910-3 (Version None)
Quarter: 2008Q1

REPORT INFORMATION
  Report Type: 
  Country: None (occurrence: None)
  Receive Date: 20080328
  Receipt Date: 20071211
  Transmission Date: 20080703
  Serious: No
  Sender: FDA-Public Use
  Company Number: US-BRISTOL-MYERS SQUIBB COMPANY-14010789

PATIENT
  Age: 52 Year
  Sex: Male
  Weight: 83 kg

DRUGS (5)
  1. ERBITUX [Suspect]
     Indication: NEOPLASM MALIGNANT
     Dosage: TOTAL NUMBER INFUSIONS-10. REDUCED TO 300 MG
     Dates: start: 20070906
  2. CISPLATIN [Suspect]
     Dosage: COMBINATION INFUSIONS(CISPLATIN/CETUXIMAB) EVERY THIRD WEEK, TOTAL 5 INFUSIONS.
  3. DECADRON [Concomitant]
     Indication: PREMEDICATION
     Dosage: FOLLOWING CETUXIMAB/ CISPLATIN INFUSIONS, THE PREMEDICATIONS WERE TAKEN 2 PER DAY FOR 3 DAYS.
     Route: 048
  4. ZOFRAN [Concomitant]
     Indication: PREMEDICATION
     Dosage: FOLLOWING THE CETUXIMAB/ CISPLATIN INFUSIONS, THE PREMEDICATIONS WERE TAKEN 2 PER DAY FOR 3 DAYS.
     Route: 048
  5. EMEND [Concomitant]
     Indication: PREMEDICATION
     Dosage: FOLLOWING THE CETUXIMAB/ CISPLATIN INFUSIONS, THE PREMEDICATIONS WERE TAKEN 2 PER DAY FOR 3 DAYS.
     Route: 048

REACTIONS (1)
  - VOMITING [None]
